FAERS Safety Report 18655223 (Version 1)
Quarter: 2020Q4

REPORT INFORMATION
  Report Type: Spontaneous
  Country: US (occurrence: US)
  Receive Date: 20201223
  Receipt Date: 20201223
  Transmission Date: 20210114
  Serious: Yes (Other)
  Sender: FDA-Public Use
  Company Number: US-SA-2020SA365128

PATIENT

DRUGS (3)
  1. SOLIFENACIN SUCCINATE. [Suspect]
     Active Substance: SOLIFENACIN SUCCINATE
     Indication: PRODUCT USED FOR UNKNOWN INDICATION
     Dosage: 10 MG, QD
  2. SOLIFENACIN SUCCINATE. [Suspect]
     Active Substance: SOLIFENACIN SUCCINATE
     Dosage: 10 MG, QD
  3. FLOMAX [Suspect]
     Active Substance: TAMSULOSIN HYDROCHLORIDE
     Indication: PRODUCT USED FOR UNKNOWN INDICATION
     Dosage: UNK UNK, QD

REACTIONS (8)
  - Hip fracture [Unknown]
  - Fall [Unknown]
  - Hypotension [Unknown]
  - Bladder dilatation [Unknown]
  - Urinary tract infection [Unknown]
  - Urinary incontinence [Unknown]
  - Intercepted product prescribing error [Unknown]
  - Loss of consciousness [Recovered/Resolved]
